FAERS Safety Report 5483752-1 (Version None)
Quarter: 2007Q4

REPORT INFORMATION
  Report Type: 
  Country: None (occurrence: None)
  Receive Date: 20071012
  Receipt Date: 20071010
  Transmission Date: 20080405
  Serious: Yes (Hospitalization)
  Sender: FDA-Public Use
  Company Number: A0414942A

PATIENT
  Age: 58 Year
  Sex: Female

DRUGS (10)
  1. ADVAIR DISKUS 100/50 [Suspect]
     Indication: ASTHMA
     Dosage: 1PUFF TWICE PER DAY
     Route: 055
     Dates: start: 20030423, end: 20040101
  2. PAXIL CR [Suspect]
     Indication: ANXIETY
     Dosage: 12.5MG AT NIGHT
     Route: 048
     Dates: start: 20030101
  3. SERZONE [Suspect]
     Indication: FIBROMYALGIA
     Dosage: 100MG PER DAY
     Dates: start: 19980101, end: 20030101
  4. FLOVENT [Suspect]
     Indication: ASTHMA
     Dosage: 2PUFF PER DAY
     Route: 055
     Dates: start: 20070901
  5. ALBUTEROL [Concomitant]
     Route: 055
  6. ATROVENT [Concomitant]
  7. PREDNISONE [Concomitant]
  8. ELAVIL [Concomitant]
  9. NEXIUM [Concomitant]
  10. VALIUM [Concomitant]

REACTIONS (28)
  - ADVERSE EVENT [None]
  - ANAEMIA [None]
  - CANDIDIASIS [None]
  - CONTRAST MEDIA REACTION [None]
  - DIAPHRAGMATIC DISORDER [None]
  - DRUG INEFFECTIVE [None]
  - DYSPHONIA [None]
  - DYSPNOEA [None]
  - FUNGAL OESOPHAGITIS [None]
  - HAEMATOCHEZIA [None]
  - HAEMOPTYSIS [None]
  - MOUTH ULCERATION [None]
  - NASAL CONGESTION [None]
  - OESOPHAGEAL DISORDER [None]
  - ORAL CANDIDIASIS [None]
  - PAIN [None]
  - PHARMACEUTICAL PRODUCT COMPLAINT [None]
  - PHARYNGEAL ERYTHEMA [None]
  - PHARYNGOLARYNGEAL PAIN [None]
  - PULMONARY HAEMORRHAGE [None]
  - PULMONARY MASS [None]
  - PULMONARY MYCOSIS [None]
  - PYREXIA [None]
  - SPEECH DISORDER [None]
  - THERAPEUTIC RESPONSE DECREASED [None]
  - TONGUE COATED [None]
  - TONGUE ULCERATION [None]
  - TREMOR [None]
